FAERS Safety Report 20800142 (Version 2)
Quarter: 2022Q2

REPORT INFORMATION
  Report Type: Spontaneous
  Country: US (occurrence: None)
  Receive Date: 20220509
  Receipt Date: 20220517
  Transmission Date: 20220720
  Serious: Yes (Death)
  Sender: FDA-Public Use
  Company Number: US-ROCHE-3091362

PATIENT
  Sex: Male
  Weight: 17.3 kg

DRUGS (2)
  1. ESBRIET [Suspect]
     Active Substance: PIRFENIDONE
     Indication: Interstitial lung disease
     Dosage: 1.25 TABLETS
     Route: 048
     Dates: start: 20211028
  2. ESBRIET [Suspect]
     Active Substance: PIRFENIDONE
     Indication: Pulmonary fibrosis

REACTIONS (3)
  - Acute respiratory failure [Fatal]
  - Hypoxia [Fatal]
  - Off label use [Unknown]
